FAERS Safety Report 5330271-9 (Version None)
Quarter: 2007Q2

REPORT INFORMATION
  Report Type: 
  Country: None (occurrence: None)
  Receive Date: 20070521
  Receipt Date: 20070508
  Transmission Date: 20071010
  Serious: No
  Sender: FDA-Public Use
  Company Number: IN-BAXTER-2007BH004107

PATIENT
  Age: 39 Year
  Sex: Male
  Weight: 65 kg

DRUGS (1)
  1. DIANEAL [Suspect]
     Indication: RENAL FAILURE CHRONIC
     Route: 033

REACTIONS (3)
  - CATHETER RELATED COMPLICATION [None]
  - FUNGAL PERITONITIS [None]
  - PERITONITIS BACTERIAL [None]
